FAERS Safety Report 5528420-2 (Version None)
Quarter: 2007Q4

REPORT INFORMATION
  Report Type: 
  Country: None (occurrence: None)
  Receive Date: 20071121
  Receipt Date: 20071109
  Transmission Date: 20080405
  Serious: Yes (Disabling)
  Sender: FDA-Public Use
  Company Number: S07-UKI-05989-01

PATIENT
  Age: 49 Year
  Sex: Female

DRUGS (2)
  1. CITALOPRAM HYDROBROMIDE [Suspect]
     Indication: DEPRESSION
     Dosage: 20 MG QD PO
     Route: 048
     Dates: start: 20071015, end: 20071017
  2. SUMATRIPTAN SUCCINATE [Concomitant]

REACTIONS (4)
  - ANXIETY [None]
  - BURNING SENSATION [None]
  - NAUSEA [None]
  - VISUAL DISTURBANCE [None]
